FAERS Safety Report 23858805 (Version 1)
Quarter: 2024Q2

REPORT INFORMATION
  Report Type: Spontaneous
  Country: GB (occurrence: GB)
  Receive Date: 20240515
  Receipt Date: 20240515
  Transmission Date: 20240716
  Serious: Yes (Hospitalization)
  Sender: FDA-Public Use
  Company Number: None

PATIENT
  Age: 52 Year
  Sex: Female

DRUGS (5)
  1. LAMOTRIGINE [Suspect]
     Active Substance: LAMOTRIGINE
     Indication: Product used for unknown indication
     Dosage: 25 MILLIGRAM, QD (1 OD 14/7, THEN INCREASING BY 1 OD EVERY 14/7 UNTIL 100MGOD)
     Route: 065
  2. FYBOGEL [Concomitant]
     Active Substance: HERBALS\PLANTAGO OVATA SEED
     Dosage: 1 DOSAGE FORM, QD (3.5G EFFERVESCENT GRANULES SACHETS SF 1 OD PRN)
     Route: 065
  3. RAMIPRIL [Concomitant]
     Active Substance: RAMIPRIL
     Dosage: 2.5 MILLIGRAM, QD
     Route: 065
  4. LACTULOSE [Concomitant]
     Active Substance: LACTULOSE
     Dosage: 15 MILLILITER, BID (15ML BD PRN)
     Route: 048
  5. NORTRIPTYLINE [Concomitant]
     Active Substance: NORTRIPTYLINE
     Dosage: 100 MILLIGRAM, QD
     Route: 065

REACTIONS (5)
  - Generalised tonic-clonic seizure [Unknown]
  - Drug intolerance [Unknown]
  - Malaise [Unknown]
  - Vertigo [Unknown]
  - Dizziness [Unknown]
